APPROVED DRUG PRODUCT: CLOBETASOL PROPIONATE
Active Ingredient: CLOBETASOL PROPIONATE
Strength: 0.05%
Dosage Form/Route: AEROSOL, FOAM;TOPICAL
Application: A215838 | Product #001 | TE Code: AB1
Applicant: ALEMBIC PHARMACEUTICALS LTD
Approved: Apr 21, 2022 | RLD: No | RS: No | Type: RX